FAERS Safety Report 4642938-6 (Version None)
Quarter: 2005Q2

REPORT INFORMATION
  Report Type: 
  Country: None (occurrence: None)
  Receive Date: 20050421
  Receipt Date: 20050401
  Transmission Date: 20051028
  Serious: Yes (Hospitalization)
  Sender: FDA-Public Use
  Company Number: EWC050343085

PATIENT
  Age: 67 Year
  Sex: Female

DRUGS (11)
  1. GEMCITABINE HYDROCHLORIDE-IV (GEMCITABINE) [Suspect]
     Indication: BILE DUCT CANCER
     Dosage: 1000 MG/M2
     Dates: start: 20041006, end: 20041203
  2. GEMCITABINE HYDROCHLORIDE-IV (GEMCITABINE) [Suspect]
  3. OXALIPLATINE [Suspect]
     Indication: BILE DUCT CANCER
     Dosage: 60 MG/M2
     Dates: start: 20041006, end: 20041203
  4. XELODA [Suspect]
     Indication: BILE DUCT CANCER
     Dosage: 1250 MG/M2
     Dates: start: 20041006, end: 20041203
  5. TRIATEC (RAMIPRIL DURA) [Concomitant]
  6. FERROUS SULFATE TAB [Concomitant]
  7. SPIRON (SPIRONOLACTONE) [Concomitant]
  8. PAMOL (PARACETAMOL) [Concomitant]
  9. LAKTULOSE (LACTULOSE) [Concomitant]
  10. PROPANE FORTE [Concomitant]
  11. HALOPERIDOL [Concomitant]

REACTIONS (16)
  - AMNESIA [None]
  - BILE DUCT CANCER [None]
  - BLOOD GLUCOSE INCREASED [None]
  - BLOOD SODIUM DECREASED [None]
  - C-REACTIVE PROTEIN INCREASED [None]
  - COMA HEPATIC [None]
  - CONDITION AGGRAVATED [None]
  - CONFUSIONAL STATE [None]
  - HAEMOGLOBIN DECREASED [None]
  - INFECTION [None]
  - MALIGNANT NEOPLASM PROGRESSION [None]
  - MASKED FACIES [None]
  - PLATELET COUNT DECREASED [None]
  - PSYCHOTIC DISORDER DUE TO A GENERAL MEDICAL CONDITION [None]
  - PYREXIA [None]
  - WHITE BLOOD CELL COUNT INCREASED [None]
